FAERS Safety Report 6043584-2 (Version None)
Quarter: 2009Q1

REPORT INFORMATION
  Report Type: 
  Country: None (occurrence: None)
  Receive Date: 20090115
  Receipt Date: 20090115
  Transmission Date: 20090719
  Serious: Yes (Other)
  Sender: FDA-Public Use
  Company Number: None

PATIENT
  Age: 78 Year
  Sex: Male
  Weight: 73.9363 kg

DRUGS (1)
  1. UROXATRAL [Suspect]
     Indication: URINARY TRACT DISORDER
     Dosage: ONE TABLET DAILY PO
     Route: 048
     Dates: start: 20080107, end: 20080114

REACTIONS (4)
  - ABDOMINAL PAIN UPPER [None]
  - DRUG INEFFECTIVE [None]
  - HEADACHE [None]
  - PRURITUS [None]
